FAERS Safety Report 8368298-5 (Version None)
Quarter: 2012Q2

REPORT INFORMATION
  Report Type: 
  Country: None (occurrence: None)
  Receive Date: 20120517
  Receipt Date: 20120509
  Transmission Date: 20120825
  Serious: Yes (Death, Hospitalization)
  Sender: FDA-Public Use
  Company Number: US-BAXTER-2012BAX005349

PATIENT
  Sex: Female

DRUGS (1)
  1. ARALAST NP [Suspect]
     Dosage: UNKNOWN

REACTIONS (3)
  - GASTRIC ULCER HAEMORRHAGE [None]
  - HYPOXIC-ISCHAEMIC ENCEPHALOPATHY [None]
  - HAEMATEMESIS [None]
